FAERS Safety Report 17996024 (Version 1)
Quarter: 2020Q3

REPORT INFORMATION
  Report Type: Spontaneous
  Country: US (occurrence: US)
  Receive Date: 20200708
  Receipt Date: 20200708
  Transmission Date: 20201103
  Serious: No
  Sender: FDA-Public Use
  Company Number: US-PFIZER INC-2020260905

PATIENT
  Age: 65 Year
  Sex: Female

DRUGS (8)
  1. CLINDAMYCIN. [Suspect]
     Active Substance: CLINDAMYCIN
     Dosage: UNK
  2. TERFENADINE [Suspect]
     Active Substance: TERFENADINE
     Dosage: UNK
  3. TRAZODONE [Suspect]
     Active Substance: TRAZODONE HYDROCHLORIDE
     Dosage: UNK
  4. SULFAMETHOXAZOLE/TRIMETHOPRIM [Suspect]
     Active Substance: SULFAMETHOXAZOLE\TRIMETHOPRIM
     Dosage: UNK
  5. TOBRAMYCIN. [Suspect]
     Active Substance: TOBRAMYCIN
     Dosage: UNK
  6. OMEPRAZOLE MAGNESIUM. [Suspect]
     Active Substance: OMEPRAZOLE MAGNESIUM
     Dosage: UNK
  7. CEFACLOR. [Suspect]
     Active Substance: CEFACLOR
     Dosage: UNK
  8. ETODOLAC. [Suspect]
     Active Substance: ETODOLAC
     Dosage: UNK

REACTIONS (1)
  - Drug hypersensitivity [Unknown]
